FAERS Safety Report 9213416 (Version 1)
Quarter: 2013Q2

REPORT INFORMATION
  Report Type: Spontaneous
  Country: NL (occurrence: NL)
  Receive Date: 20130405
  Receipt Date: 20130405
  Transmission Date: 20140414
  Serious: Yes (Disabling, Other)
  Sender: FDA-Public Use
  Company Number: PHHY2013NL032919

PATIENT
  Sex: Female

DRUGS (3)
  1. ZOMETA [Suspect]
     Indication: BREAST CANCER METASTATIC
     Dosage: 4 MG / 100 ML EVERY 42 DAYS
     Route: 042
  2. ZOMETA [Suspect]
     Dosage: 4 MG / 100 ML EVERY 42 DAYS
     Route: 042
     Dates: start: 20120614
  3. ZOMETA [Suspect]
     Dosage: 4 MG / 100 ML EVERY 42 DAYS
     Route: 042
     Dates: start: 20130205

REACTIONS (3)
  - Cerebrovascular accident [Unknown]
  - Paralysis [Unknown]
  - Feeling abnormal [Unknown]
